FAERS Safety Report 7205054-5 (Version None)
Quarter: 2010Q4

REPORT INFORMATION
  Report Type: 
  Country: None (occurrence: None)
  Receive Date: 20101230
  Receipt Date: 20101214
  Transmission Date: 20110411
  Serious: Yes (Hospitalization)
  Sender: FDA-Public Use
  Company Number: PHHY2010FR88334

PATIENT
  Age: 59 Year
  Sex: Female

DRUGS (4)
  1. RASILEZ [Suspect]
     Indication: HYPERTENSION
     Dosage: 150 MG, ONE DOSAGE FORM DAILY
     Route: 048
     Dates: start: 20100601, end: 20100701
  2. LOXEN [Suspect]
     Indication: HYPERTENSION
     Dosage: UNK
     Route: 048
  3. ATACAND [Concomitant]
  4. HYPERIUM [Concomitant]

REACTIONS (2)
  - BLOOD CREATININE INCREASED [None]
  - RENAL IMPAIRMENT [None]
